FAERS Safety Report 9109928 (Version 4)
Quarter: 2013Q3

REPORT INFORMATION
  Report Type: Report from Study
  Country: JP (occurrence: JP)
  Receive Date: 20130222
  Receipt Date: 20130911
  Transmission Date: 20140515
  Serious: Yes (Death, Other)
  Sender: FDA-Public Use
  Company Number: JP-ROCHE-1193898

PATIENT
  Age: 54 Year
  Sex: Male

DRUGS (8)
  1. METHOXY POLYETHYLENE GLYCOL-EPOETIN BETA [Suspect]
     Indication: NEPHROGENIC ANAEMIA
     Route: 058
     Dates: start: 20110917, end: 20111015
  2. METHOXY POLYETHYLENE GLYCOL-EPOETIN BETA [Suspect]
     Indication: NEPHROGENIC ANAEMIA
     Route: 058
     Dates: start: 20111102, end: 20120715
  3. MICARDIS [Concomitant]
     Indication: HYPERTENSION
     Route: 048
     Dates: end: 20120702
  4. MAINTATE [Concomitant]
     Indication: HYPERTENSION
     Route: 048
     Dates: end: 20120702
  5. AMLODIN [Concomitant]
     Indication: HYPERTENSION
     Route: 048
     Dates: end: 20120702
  6. CARDENALIN [Concomitant]
     Indication: NEPHROSCLEROSIS
     Route: 048
     Dates: end: 20120702
  7. PREDONINE [Concomitant]
     Route: 048
     Dates: end: 20120723
  8. LASIX [Concomitant]
     Indication: NEPHROSCLEROSIS
     Route: 048
     Dates: end: 20120702

REACTIONS (3)
  - Sepsis [Fatal]
  - Multi-organ failure [Fatal]
  - Femoral neck fracture [Unknown]
